FAERS Safety Report 15052669 (Version 1)
Quarter: 2018Q2

REPORT INFORMATION
  Report Type: Spontaneous
  Country: US (occurrence: US)
  Receive Date: 20180601
  Receipt Date: 20180601
  Transmission Date: 20180711
  Serious: Yes (Death, Life-Threatening, Hospitalization, Other)
  Sender: FDA-Public Use
  Company Number: None

PATIENT
  Age: 10 Year
  Sex: Male
  Weight: 35.5 kg

DRUGS (14)
  1. VANCOMYCIN [Concomitant]
     Active Substance: VANCOMYCIN
  2. FAMOTIDINE. [Concomitant]
     Active Substance: FAMOTIDINE
  3. ONDANSETRON [Concomitant]
     Active Substance: ONDANSETRON
  4. SULFAMETHOXAZOLE/TRIMETHOPRIM [Concomitant]
     Active Substance: SULFAMETHOXAZOLE\TRIMETHOPRIM
  5. LIDOCAINE PATCH [Concomitant]
     Active Substance: LIDOCAINE
  6. ZOSYN [Concomitant]
     Active Substance: PIPERACILLIN SODIUM\TAZOBACTAM SODIUM
  7. NALBUPHINE [Concomitant]
     Active Substance: NALBUPHINE
  8. PCA HYDROMORPHONE [Concomitant]
  9. MICAFUNGIN [Concomitant]
     Active Substance: MICAFUNGIN
  10. TEMSIROLIMUS [Suspect]
     Active Substance: TEMSIROLIMUS
     Indication: ACUTE LYMPHOCYTIC LEUKAEMIA
     Route: 042
     Dates: start: 20180423, end: 20180430
  11. ALLOPURINOL. [Concomitant]
     Active Substance: ALLOPURINOL
  12. ACETAMINOPHEN. [Concomitant]
     Active Substance: ACETAMINOPHEN
  13. ETOPOSIDE. [Suspect]
     Active Substance: ETOPOSIDE
     Indication: ACUTE LYMPHOCYTIC LEUKAEMIA
     Dosage: 100 MG/M2 DAILY X 5 ON DAY 1-5 IV
     Route: 042
     Dates: start: 20180423, end: 20180430
  14. GABAPENTIN. [Concomitant]
     Active Substance: GABAPENTIN

REACTIONS (9)
  - Subdural haematoma [None]
  - Pericardial effusion [None]
  - Fungal infection [None]
  - Pneumonitis [None]
  - Pericarditis [None]
  - Respiratory failure [None]
  - Febrile neutropenia [None]
  - Pleural effusion [None]
  - Neck pain [None]

NARRATIVE: CASE EVENT DATE: 20180508
